FAERS Safety Report 23035696 (Version 1)
Quarter: 2023Q4

REPORT INFORMATION
  Report Type: Spontaneous
  Country: US (occurrence: US)
  Receive Date: 20231006
  Receipt Date: 20231006
  Transmission Date: 20240110
  Serious: Yes (Other)
  Sender: FDA-Public Use
  Company Number: US-BRISTOL-MYERS SQUIBB COMPANY-2023-141267

PATIENT
  Age: 64 Year
  Sex: Male

DRUGS (1)
  1. REVLIMID [Suspect]
     Active Substance: LENALIDOMIDE
     Indication: Plasma cell myeloma
     Dosage: TAKE 1 CAPSULE BY MOUTH AT ABOUT THE SAME TIME EACH DAY, WITH OR WITHOUT FOOD, FOR 28 DAYS. SWALLOW
     Route: 048
     Dates: start: 20220729

REACTIONS (1)
  - COVID-19 [Not Recovered/Not Resolved]
